FAERS Safety Report 23123513 (Version 2)
Quarter: 2023Q4

REPORT INFORMATION
  Report Type: Spontaneous
  Country: GR (occurrence: GR)
  Receive Date: 20231030
  Receipt Date: 20231106
  Transmission Date: 20240110
  Serious: Yes (Hospitalization, Other)
  Sender: FDA-Public Use
  Company Number: GR-MYLANLABS-2023M1113666

PATIENT
  Age: 50 Year
  Sex: Male

DRUGS (10)
  1. CLOPIDOGREL [Suspect]
     Active Substance: CLOPIDOGREL BISULFATE
     Indication: Acute myocardial infarction
     Dosage: 300 MILLIGRAM
     Route: 065
  2. CLOPIDOGREL [Suspect]
     Active Substance: CLOPIDOGREL BISULFATE
     Dosage: 75 MILLIGRAM FOR 12 MONTHS
     Route: 065
  3. TICAGRELOR [Suspect]
     Active Substance: TICAGRELOR
     Indication: Acute myocardial infarction
     Dosage: 180 MILLIGRAM
     Route: 065
  4. TICAGRELOR [Suspect]
     Active Substance: TICAGRELOR
     Dosage: BID,(90)
     Route: 065
  5. ASPIRIN [Suspect]
     Active Substance: ASPIRIN
     Indication: Acute myocardial infarction
     Dosage: 250 MILLIGRAM
     Route: 065
  6. ASPIRIN [Suspect]
     Active Substance: ASPIRIN
     Dosage: 100 MILLIGRAM
     Route: 065
  7. ENOXAPARIN [Suspect]
     Active Substance: ENOXAPARIN
     Indication: Acute myocardial infarction
     Dosage: 80 MILLIGRAM,1MG/KG OF BODY WEIGH
     Route: 065
  8. RETEPLASE [Suspect]
     Active Substance: RETEPLASE
     Indication: Acute myocardial infarction
     Dosage: 80 MILLIGRAM
     Route: 042
  9. BISOPROLOL [Concomitant]
     Active Substance: BISOPROLOL\BISOPROLOL FUMARATE
     Indication: Product used for unknown indication
     Dosage: 5 MILLIGRAM
     Route: 065
  10. ATORVASTATIN [Concomitant]
     Active Substance: ATORVASTATIN
     Indication: Product used for unknown indication
     Dosage: 40 MILLIGRAM
     Route: 065

REACTIONS (6)
  - Subarachnoid haemorrhage [Recovering/Resolving]
  - Extradural haematoma [Recovering/Resolving]
  - Dyspnoea [Unknown]
  - Headache [Unknown]
  - Neck pain [Unknown]
  - Drug ineffective [Unknown]
